FAERS Safety Report 9850714 (Version 1)
Quarter: 2013Q4

REPORT INFORMATION
  Report Type: Spontaneous
  Country: US (occurrence: None)
  Receive Date: 20131226
  Receipt Date: 20131226
  Transmission Date: 20140711
  Serious: Yes (Hospitalization, Other)
  Sender: FDA-Public Use
  Company Number: PHEH2012US017511

PATIENT
  Age: 62 Year
  Sex: Male

DRUGS (6)
  1. AFINITOR [Suspect]
     Indication: NEOPLASM MALIGNANT
     Route: 048
     Dates: start: 20120315, end: 20120830
  2. CREON (AMYLASE, LIPASE, PANCREATIN, PROTEASE)? [Concomitant]
  3. SUTENT (SUNITNIB MALATE) [Concomitant]
  4. SANDOSTATIN LAR (OCTREOTIDE) [Concomitant]
  5. MINOCYCLINE (MINOCYCLINE) [Concomitant]
  6. LYRICA (PREGABALIN) [Concomitant]

REACTIONS (2)
  - Neoplasm [None]
  - Malignant neoplasm progression [None]
